FAERS Safety Report 8512900-1 (Version None)
Quarter: 2012Q3

REPORT INFORMATION
  Report Type: 
  Country: None (occurrence: None)
  Receive Date: 20120705
  Receipt Date: 20120619
  Transmission Date: 20120928
  Serious: Yes (Other)
  Sender: FDA-Public Use
  Company Number: BR-1192837

PATIENT
  Sex: Female

DRUGS (1)
  1. BSS [Suspect]
     Dosage: INTRAOCULAR
     Route: 031

REACTIONS (3)
  - LIMB INJURY [None]
  - LACERATION [None]
  - ACCIDENT AT WORK [None]
